FAERS Safety Report 4667211-1 (Version None)
Quarter: 2005Q2

REPORT INFORMATION
  Report Type: 
  Country: None (occurrence: None)
  Receive Date: 20050520
  Receipt Date: 20040803
  Transmission Date: 20051028
  Serious: No
  Sender: FDA-Public Use
  Company Number: US-BRISTOL-MYERS SQUIBB COMPANY-12659165

PATIENT
  Age: 78 Year
  Sex: Male
  Weight: 82 kg

DRUGS (7)
  1. SINEMET [Suspect]
     Indication: HYPERTENSION
     Dosage: 25/100 MG, DECREASED TO 3 TABLETS DAILY, THEN INTERRUPTED ON 03-AUG-2004
     Route: 048
     Dates: start: 20031201
  2. ARICEPT [Concomitant]
     Dates: start: 20040510
  3. LEXAPRO [Concomitant]
  4. OXYTROL [Concomitant]
  5. NEXIUM [Concomitant]
  6. SYNTHROID [Concomitant]
  7. ATENOLOL [Concomitant]

REACTIONS (6)
  - ANOREXIA [None]
  - DEPRESSED MOOD [None]
  - DYSTONIA [None]
  - LETHARGY [None]
  - NAUSEA [None]
  - VOMITING [None]
